FAERS Safety Report 8831028 (Version 2)
Quarter: 2012Q4

REPORT INFORMATION
  Report Type: Report from Study
  Country: JP (occurrence: JP)
  Receive Date: 20121008
  Receipt Date: 20121115
  Transmission Date: 20130627
  Serious: Yes (Other)
  Sender: FDA-Public Use
  Company Number: JP-NOVOPROD-361396

PATIENT
  Age: 86 Year
  Sex: Female
  Weight: 86 kg

DRUGS (5)
  1. LIRAGLUTIDE FLEXPEN [Suspect]
     Indication: TYPE 2 DIABETES MELLITUS
     Dosage: 0.3 mg, before bedtime
     Route: 058
     Dates: start: 20120619
  2. LIRAGLUTIDE FLEXPEN [Suspect]
     Dosage: 0.3 mg, before bedtime
     Route: 058
     Dates: start: 20120626
  3. NIFEDIPINE [Concomitant]
  4. BLOPRESS [Concomitant]
  5. ARICEPT [Concomitant]

REACTIONS (1)
  - Mental disorder [Recovering/Resolving]
